FAERS Safety Report 7625493-8 (Version None)
Quarter: 2011Q3

REPORT INFORMATION
  Report Type: 
  Country: None (occurrence: None)
  Receive Date: 20110721
  Receipt Date: 20110309
  Transmission Date: 20111222
  Serious: Yes (Other)
  Sender: FDA-Public Use
  Company Number: US-BAYER-2011-062612

PATIENT
  Sex: Male
  Weight: 2.358 kg

DRUGS (1)
  1. MIRENA [Suspect]
     Dosage: UNK
     Route: 064

REACTIONS (1)
  - SMALL FOR DATES BABY [None]
